FAERS Safety Report 10430223 (Version 5)
Quarter: 2015Q2

REPORT INFORMATION
  Report Type: Spontaneous
  Country: US (occurrence: US)
  Receive Date: 20140904
  Receipt Date: 20150504
  Transmission Date: 20150821
  Serious: Yes (Life-Threatening, Hospitalization, Other)
  Sender: FDA-Public Use
  Company Number: US-BAYER-2014-132132

PATIENT
  Age: 20 Year
  Sex: Female
  Weight: 80.27 kg

DRUGS (1)
  1. MIRENA [Suspect]
     Active Substance: LEVONORGESTREL
     Indication: CONTRACEPTION
     Dosage: 20 MCG/24HR, CONT
     Route: 015
     Dates: start: 20041025, end: 20130604

REACTIONS (10)
  - Device misuse [None]
  - Ectopic pregnancy with contraceptive device [None]
  - General physical health deterioration [None]
  - Device dislocation [None]
  - Infection [None]
  - Uterine perforation [None]
  - Abortion spontaneous [None]
  - Abdominal pain [None]
  - Drug ineffective [None]
  - Injury [None]

NARRATIVE: CASE EVENT DATE: 200410
